FAERS Safety Report 5664131-0 (Version None)
Quarter: 2008Q1

REPORT INFORMATION
  Report Type: 
  Country: None (occurrence: None)
  Receive Date: 20080312
  Receipt Date: 20080227
  Transmission Date: 20080703
  Serious: Yes (Hospitalization)
  Sender: FDA-Public Use
  Company Number: 2008BI000460

PATIENT
  Age: 54 Year
  Sex: Female

DRUGS (8)
  1. TYSABRI [Suspect]
     Indication: MULTIPLE SCLEROSIS
     Dosage: 300 MG;QM; IV
     Route: 042
     Dates: start: 20071113
  2. AVONEX [Concomitant]
  3. PREMARIN [Concomitant]
  4. PROVERA [Concomitant]
  5. BACLOFEN [Concomitant]
  6. AMANTADINE HCL [Concomitant]
  7. SYNTHROID [Concomitant]
  8. INTERMITTENT STEROIDS [Concomitant]

REACTIONS (2)
  - ENDOMETRIOSIS [None]
  - OVARIAN CANCER [None]
